FAERS Safety Report 25170962 (Version 1)
Quarter: 2025Q2

REPORT INFORMATION
  Report Type: Spontaneous
  Country: US (occurrence: US)
  Receive Date: 20250408
  Receipt Date: 20250408
  Transmission Date: 20250717
  Serious: Yes (Other)
  Sender: COLLEGIUM PHARMACEUTICAL
  Company Number: US-COLLEGIUM PHARMACEUTICAL, INC.-20250301935

PATIENT

DRUGS (3)
  1. BELBUCA [Suspect]
     Active Substance: BUPRENORPHINE HYDROCHLORIDE
     Indication: Product used for unknown indication
     Route: 002
  2. BELBUCA [Suspect]
     Active Substance: BUPRENORPHINE HYDROCHLORIDE
     Route: 002
  3. MOVANTIK [Concomitant]
     Active Substance: NALOXEGOL OXALATE
     Indication: Constipation
     Route: 065

REACTIONS (3)
  - Seizure [Unknown]
  - Spinal disorder [Unknown]
  - Constipation [Unknown]
